FAERS Safety Report 5955323-1 (Version None)
Quarter: 2008Q4

REPORT INFORMATION
  Report Type: 
  Country: None (occurrence: None)
  Receive Date: 20081117
  Receipt Date: 20081107
  Transmission Date: 20090506
  Serious: Yes (Life-Threatening, Hospitalization)
  Sender: FDA-Public Use
  Company Number: FR-WYE-H06425508

PATIENT
  Sex: Male

DRUGS (5)
  1. INIPOMP [Suspect]
     Dosage: 40 MG FREQUENCY UNSPECIFIED
     Route: 048
     Dates: start: 20080828
  2. CLASTOBAN [Suspect]
     Dosage: DOSE AND FREQUENCY UNSPECIFIED
     Route: 048
     Dates: start: 20080905
  3. TARCEVA [Suspect]
     Indication: LUNG NEOPLASM MALIGNANT
     Dosage: 150 MG FREQUENCY UNSPECIFIED
     Route: 048
     Dates: start: 20080906, end: 20080908
  4. CORTANCYL [Suspect]
     Dosage: 3 DOSEAGE FORMS
     Route: 048
     Dates: start: 20080905
  5. LOVENOX [Suspect]
     Dosage: DOSE AND FREQUENCY UNSPECIFIED
     Route: 058
     Dates: start: 20080828

REACTIONS (6)
  - BLOOD BILIRUBIN UNCONJUGATED INCREASED [None]
  - EPISTAXIS [None]
  - JAUNDICE [None]
  - NAUSEA [None]
  - THROMBOCYTOPENIA [None]
  - VOMITING [None]
